FAERS Safety Report 9010082 (Version 2)
Quarter: 2013Q1

REPORT INFORMATION
  Report Type: Spontaneous
  Country: CH (occurrence: CH)
  Receive Date: 20130110
  Receipt Date: 20130125
  Transmission Date: 20140127
  Serious: Yes (Other)
  Sender: FDA-Public Use
  Company Number: CH-JNJFOC-20121112431

PATIENT
  Age: 20 None
  Sex: Female

DRUGS (1)
  1. CONCERTA [Suspect]
     Indication: PRODUCT USED FOR UNKNOWN INDICATION
     Route: 048
     Dates: start: 20120703, end: 2012

REACTIONS (4)
  - Autoimmune thyroiditis [Unknown]
  - Nervousness [Unknown]
  - Aggression [Unknown]
  - Weight decreased [Unknown]
